FAERS Safety Report 21683502 (Version 5)
Quarter: 2023Q2

REPORT INFORMATION
  Report Type: Spontaneous
  Country: DE (occurrence: DE)
  Receive Date: 20221205
  Receipt Date: 20230523
  Transmission Date: 20230721
  Serious: Yes (Death, Hospitalization, Other)
  Sender: FDA-Public Use
  Company Number: DE-002147023-NVSC2022DE264367

PATIENT
  Age: 12 Year

DRUGS (8)
  1. GUANFACINE HYDROCHLORIDE [Suspect]
     Active Substance: GUANFACINE HYDROCHLORIDE
     Indication: Intellectual disability
     Dosage: UNK
     Route: 065
  2. GUANFACINE HYDROCHLORIDE [Suspect]
     Active Substance: GUANFACINE HYDROCHLORIDE
     Indication: Behaviour disorder
  3. GUANFACINE HYDROCHLORIDE [Suspect]
     Active Substance: GUANFACINE HYDROCHLORIDE
     Indication: Emotional disorder
  4. GUANFACINE HYDROCHLORIDE [Suspect]
     Active Substance: GUANFACINE HYDROCHLORIDE
     Indication: Antipsychotic therapy
  5. ARIPIPRAZOLE [Suspect]
     Active Substance: ARIPIPRAZOLE
     Indication: Antipsychotic therapy
     Dosage: UNK
     Route: 065
  6. ARIPIPRAZOLE [Suspect]
     Active Substance: ARIPIPRAZOLE
     Indication: Intellectual disability
  7. ARIPIPRAZOLE [Suspect]
     Active Substance: ARIPIPRAZOLE
     Indication: Behaviour disorder
  8. ARIPIPRAZOLE [Suspect]
     Active Substance: ARIPIPRAZOLE
     Indication: Emotional disorder

REACTIONS (6)
  - Electrocardiogram QT prolonged [Fatal]
  - Drug interaction [Fatal]
  - Off label use [Unknown]
  - Product use issue [Unknown]
  - Product use in unapproved indication [Unknown]
  - Product administered to patient of inappropriate age [Unknown]
